FAERS Safety Report 15594527 (Version 1)
Quarter: 2018Q4

REPORT INFORMATION
  Report Type: Spontaneous
  Country: US (occurrence: US)
  Receive Date: 20181107
  Receipt Date: 20181107
  Transmission Date: 20190205
  Serious: Yes (Other)
  Sender: FDA-Public Use
  Company Number: US-009507513-1811USA001041

PATIENT
  Age: 35 Year
  Sex: Female

DRUGS (2)
  1. CAPECITABINE. [Suspect]
     Active Substance: CAPECITABINE
     Indication: PITUITARY TUMOUR BENIGN
  2. TEMODAR [Suspect]
     Active Substance: TEMOZOLOMIDE
     Indication: PITUITARY TUMOUR BENIGN
     Route: 048

REACTIONS (3)
  - Thrombocytopenia [Unknown]
  - Drug intolerance [Unknown]
  - Off label use [Unknown]
